FAERS Safety Report 15889129 (Version 2)
Quarter: 2019Q1

REPORT INFORMATION
  Report Type: Spontaneous
  Country: JP (occurrence: JP)
  Receive Date: 20190130
  Receipt Date: 20190222
  Transmission Date: 20190417
  Serious: Yes (Hospitalization)
  Sender: FDA-Public Use
  Company Number: PHJP2018JP013720

PATIENT
  Sex: Male

DRUGS (1)
  1. TASIGNA [Suspect]
     Active Substance: NILOTINIB
     Indication: CHRONIC MYELOID LEUKAEMIA
     Dosage: 300 MG, UNK
     Route: 048
     Dates: start: 201806

REACTIONS (3)
  - Spinal fracture [Unknown]
  - Platelet count decreased [Unknown]
  - Fall [Unknown]

NARRATIVE: CASE EVENT DATE: 201806
